FAERS Safety Report 15821607 (Version 2)
Quarter: 2019Q2

REPORT INFORMATION
  Report Type: Report from Study
  Country: CN (occurrence: CN)
  Receive Date: 20190114
  Receipt Date: 20190524
  Transmission Date: 20190711
  Serious: Yes (Hospitalization)
  Sender: FDA-Public Use
  Company Number: CN-CELGENEUS-CHN-20190103637

PATIENT
  Age: 62 Year
  Sex: Male

DRUGS (8)
  1. CALCIUM CARBONATE D3 [Concomitant]
     Indication: MINERAL SUPPLEMENTATION
     Route: 048
     Dates: start: 20181210, end: 20181210
  2. BGB-A317/TISLELIZUMAB [Suspect]
     Active Substance: TISLELIZUMAB
     Indication: NON-SMALL CELL LUNG CANCER
     Dosage: 200 MILLIGRAM
     Route: 041
     Dates: start: 20180919, end: 20181214
  3. CARBOPLATIN. [Suspect]
     Active Substance: CARBOPLATIN
     Indication: NON-SMALL CELL LUNG CANCER
     Dosage: 750 MILLIGRAM
     Route: 041
     Dates: start: 20180919, end: 20181214
  4. GLUTATHIONE [Concomitant]
     Active Substance: GLUTATHIONE
     Indication: ANAEMIA
     Dosage: 10
     Route: 041
     Dates: start: 20181211, end: 20181218
  5. BAILING JIAO NANG [Concomitant]
     Indication: RENAL DISORDER
     Route: 048
     Dates: start: 20181204
  6. RECOMBINANT HUMAN ERYTHROPOIETIN [Concomitant]
     Active Substance: ERYTHROPOIETIN
     Indication: ANAEMIA
     Dosage: 10
     Route: 058
     Dates: start: 20181211, end: 20181211
  7. PIAN PO BLUE [Concomitant]
     Indication: ANTIINFLAMMATORY THERAPY
     Route: 048
     Dates: start: 20181206, end: 20181211
  8. ABRAXANE [Suspect]
     Active Substance: PACLITAXEL
     Indication: NON-SMALL CELL LUNG CANCER
     Route: 041
     Dates: start: 20180919, end: 20181214

REACTIONS (1)
  - Acute kidney injury [Recovered/Resolved]

NARRATIVE: CASE EVENT DATE: 20181210
